FAERS Safety Report 4668488-9 (Version None)
Quarter: 2005Q2

REPORT INFORMATION
  Report Type: 
  Country: None (occurrence: None)
  Receive Date: 20050523
  Receipt Date: 20040907
  Transmission Date: 20051028
  Serious: Yes (Other)
  Sender: FDA-Public Use
  Company Number: PHEH2004US09643

PATIENT
  Sex: Male

DRUGS (8)
  1. SYNTHROID [Concomitant]
  2. ARANESP [Concomitant]
  3. PLAVIX [Concomitant]
  4. IMIPRAMINE [Concomitant]
  5. ZANTAC [Concomitant]
  6. ALTACE [Concomitant]
  7. HORMONE ANTAGONISTS AND RELATED AGENTS [Concomitant]
     Dates: start: 20001201
  8. ZOLEDRONATE [Suspect]
     Indication: METASTASES TO BONE
     Dosage: 4 MG, QMO
     Dates: start: 20010901, end: 20031201

REACTIONS (2)
  - BONE DISORDER [None]
  - OSTEONECROSIS [None]
